FAERS Safety Report 8801155 (Version 1)
Quarter: 2012Q4

REPORT INFORMATION
  Report Type: 
  Country: BR (occurrence: BR)
  Receive Date: 20120921
  Receipt Date: 20120921
  Transmission Date: 20130627
  Serious: Yes (Hospitalization)
  Sender: FDA-Public Use
  Company Number: BR-ASTRAZENECA-2012SE71774

PATIENT
  Age: 54 Year
  Sex: Male
  Weight: 85 kg

DRUGS (4)
  1. SYMBICORT TURBUHALER [Suspect]
     Indication: COUGH
     Dosage: 160/4.5 MCG BID
     Route: 055
     Dates: start: 201206
  2. CRESTOR [Suspect]
     Indication: BLOOD CHOLESTEROL INCREASED
     Route: 048
     Dates: start: 2007
  3. METFORMIN [Concomitant]
     Indication: DIABETES MELLITUS
     Route: 048
     Dates: start: 2006
  4. ASPIRIN PREVENT [Concomitant]
     Route: 048
     Dates: start: 2010

REACTIONS (5)
  - Venous occlusion [Recovered/Resolved]
  - Angina pectoris [Unknown]
  - Myalgia [Not Recovered/Not Resolved]
  - Cough [Recovering/Resolving]
  - Drug ineffective [Unknown]
